FAERS Safety Report 4369009-0 (Version None)
Quarter: 2004Q2

REPORT INFORMATION
  Report Type: 
  Country: None (occurrence: None)
  Receive Date: 20040527
  Receipt Date: 20040520
  Transmission Date: 20050107
  Serious: Yes (Life-Threatening, Hospitalization)
  Sender: FDA-Public Use
  Company Number: 2004-04-1571

PATIENT
  Age: 48 Year
  Sex: Female
  Weight: 73 kg

DRUGS (6)
  1. PEG-INTRON [Suspect]
     Indication: HEPATITIS C
     Dosage: 120 MCG WWK SUBCUTANEOUS
     Route: 058
     Dates: start: 20030410
  2. REBETOL [Suspect]
     Dosage: SEE IMAGE
     Route: 048
     Dates: start: 20030410, end: 20030417
  3. ZIDOVUDINE [Concomitant]
  4. TENOFOVIR (PMPA) [Concomitant]
  5. ABACAVIR [Concomitant]
  6. EFAVIRENZ [Concomitant]

REACTIONS (6)
  - BLOOD LACTATE DEHYDROGENASE INCREASED [None]
  - CHROMATURIA [None]
  - HAEMOGLOBIN DECREASED [None]
  - HAEMOGLOBINURIA [None]
  - HAPTOGLOBIN DECREASED [None]
  - RETICULOCYTE COUNT INCREASED [None]
